FAERS Safety Report 7863907-9 (Version None)
Quarter: 2011Q4

REPORT INFORMATION
  Report Type: 
  Country: None (occurrence: None)
  Receive Date: 20111028
  Receipt Date: 20111019
  Transmission Date: 20120403
  Serious: No
  Sender: FDA-Public Use
  Company Number: US-BIOGENIDEC-2011BI040089

PATIENT
  Age: 46 Year
  Sex: Female

DRUGS (4)
  1. NEXIUM [Concomitant]
     Indication: DYSPEPSIA
     Dates: start: 20110901
  2. PERCOCET [Concomitant]
     Indication: BACK PAIN
     Dates: start: 20060101
  3. PERCOCET [Concomitant]
     Indication: ARTHRALGIA
     Dates: start: 20060101
  4. TYSABRI [Suspect]
     Indication: MULTIPLE SCLEROSIS
     Route: 042
     Dates: start: 20070920

REACTIONS (2)
  - SPINAL OSTEOARTHRITIS [None]
  - CENTRAL NERVOUS SYSTEM LESION [None]
